FAERS Safety Report 8142191-5 (Version None)
Quarter: 2012Q1

REPORT INFORMATION
  Report Type: 
  Country: None (occurrence: None)
  Receive Date: 20120216
  Receipt Date: 20120209
  Transmission Date: 20120608
  Serious: Yes (Other)
  Sender: FDA-Public Use
  Company Number: TR-JNJFOC-20120102780

PATIENT
  Sex: Male

DRUGS (5)
  1. PALIPERIDONE PALMITATE [Suspect]
     Route: 030
     Dates: start: 20110928, end: 20111006
  2. PALIPERIDONE ER [Concomitant]
     Indication: SCHIZOPHRENIA
     Route: 048
     Dates: start: 20111006, end: 20111028
  3. PALIPERIDONE ER [Concomitant]
     Route: 048
     Dates: start: 20110928, end: 20111006
  4. PALIPERIDONE PALMITATE [Suspect]
     Indication: SCHIZOPHRENIA
     Route: 030
     Dates: start: 20111209
  5. PALIPERIDONE PALMITATE [Suspect]
     Route: 030
     Dates: start: 20111008, end: 20111028

REACTIONS (2)
  - SOCIAL AVOIDANT BEHAVIOUR [None]
  - APATHY [None]
